FAERS Safety Report 5349626-1 (Version None)
Quarter: 2007Q2

REPORT INFORMATION
  Report Type: 
  Country: None (occurrence: None)
  Receive Date: 20070607
  Receipt Date: 20070604
  Transmission Date: 20071010
  Serious: Yes (Other)
  Sender: FDA-Public Use
  Company Number: US-JNJFOC-20070601092

PATIENT
  Age: 80 Year

DRUGS (1)
  1. REMICADE [Suspect]
     Indication: PSORIATIC ARTHROPATHY
     Dosage: 4 INFUSIONS ON UNSPECIFIED DATES.
     Route: 042

REACTIONS (3)
  - HYPERCALCAEMIA [None]
  - HYPERKALAEMIA [None]
  - PULMONARY MASS [None]
